FAERS Safety Report 15558644 (Version 1)
Quarter: 2018Q4

REPORT INFORMATION
  Report Type: Report from Study
  Country: None (occurrence: US)
  Receive Date: 20181029
  Receipt Date: 20181029
  Transmission Date: 20190205
  Serious: Yes (Other)
  Sender: FDA-Public Use
  Company Number: US-ABBVIE-17K-163-2035341-00

PATIENT
  Age: 53 Year
  Sex: Female

DRUGS (3)
  1. HUMIRA [Suspect]
     Active Substance: ADALIMUMAB
     Indication: RHEUMATOID ARTHRITIS
  2. FLU SHOT [Concomitant]
     Active Substance: INFLUENZA VIRUS VACCINE
     Indication: PRODUCT USED FOR UNKNOWN INDICATION
     Dates: start: 201711
  3. HUMIRA [Suspect]
     Active Substance: ADALIMUMAB
     Indication: PSORIATIC ARTHROPATHY
     Route: 058

REACTIONS (10)
  - Incorrect product administration duration [Unknown]
  - Swelling [Unknown]
  - Pain in extremity [Unknown]
  - Influenza [Unknown]
  - Back pain [Unknown]
  - Rash papular [Unknown]
  - Psoriatic arthropathy [Unknown]
  - Uterine polyp [Unknown]
  - Hypothyroidism [Unknown]
  - Sinusitis [Unknown]

NARRATIVE: CASE EVENT DATE: 201712
